FAERS Safety Report 5765267-6 (Version None)
Quarter: 2008Q2

REPORT INFORMATION
  Report Type: 
  Country: None (occurrence: None)
  Receive Date: 20080609
  Receipt Date: 20080609
  Transmission Date: 20081010
  Serious: Yes (Other)
  Sender: FDA-Public Use
  Company Number: None

PATIENT
  Age: 53 Year
  Sex: Female
  Weight: 78.9259 kg

DRUGS (1)
  1. MELOXICAM [Suspect]
     Indication: JOINT INJURY
     Dosage: 1 TABLET EVERY 24 HOURS PO
     Route: 048
     Dates: start: 20080415, end: 20080531

REACTIONS (5)
  - CHEST DISCOMFORT [None]
  - DYSPNOEA [None]
  - EXTRASYSTOLES [None]
  - ORTHOPNOEA [None]
  - PALPITATIONS [None]
